FAERS Safety Report 21599621 (Version 1)
Quarter: 2022Q4

REPORT INFORMATION
  Report Type: Spontaneous
  Country: US (occurrence: None)
  Receive Date: 20221115
  Receipt Date: 20221115
  Transmission Date: 20230113
  Serious: Yes (Hospitalization)
  Sender: FDA-Public Use
  Company Number: None

PATIENT
  Age: 83 Year
  Sex: Male

DRUGS (2)
  1. RIVAROXABAN [Suspect]
     Active Substance: RIVAROXABAN
     Indication: Peripheral vascular disorder
     Dosage: 2.5 MG BID PO?
     Route: 048
     Dates: start: 20220907
  2. NAPROXEN [Suspect]
     Active Substance: NAPROXEN
     Indication: Gout
     Dosage: 500 MG EVERY DAY PO
     Route: 048
     Dates: start: 20221018, end: 20221021

REACTIONS (2)
  - Anaemia [None]
  - Epistaxis [None]

NARRATIVE: CASE EVENT DATE: 20221021
